FAERS Safety Report 14673481 (Version 1)
Quarter: 2018Q1

REPORT INFORMATION
  Report Type: Report from Study
  Country: CA (occurrence: CA)
  Receive Date: 20180323
  Receipt Date: 20180323
  Transmission Date: 20180509
  Serious: No
  Sender: FDA-Public Use
  Company Number: CA-ROCHE-2095938

PATIENT
  Sex: Female

DRUGS (1)
  1. OCREVUS [Suspect]
     Active Substance: OCRELIZUMAB
     Indication: RELAPSING-REMITTING MULTIPLE SCLEROSIS
     Dosage: 300 MG DAY 1, DAY 15 THEN 600 MG EVERY 6 MONTHS; ONGOING: YES
     Route: 042
     Dates: start: 20180214

REACTIONS (2)
  - Aphthous ulcer [Unknown]
  - Nasopharyngitis [Unknown]
